FAERS Safety Report 11771149 (Version 1)
Quarter: 2015Q4

REPORT INFORMATION
  Report Type: Spontaneous
  Country: US (occurrence: US)
  Receive Date: 20151124
  Receipt Date: 20151124
  Transmission Date: 20160304
  Serious: No
  Sender: FDA-Public Use
  Company Number: US-HOSPIRA-2765720

PATIENT
  Age: 68 Year
  Sex: Female

DRUGS (2)
  1. LIDOCAINE HYDROCHLORIDE. [Suspect]
     Active Substance: LIDOCAINE HYDROCHLORIDE
     Indication: PRODUCT USE ISSUE
     Dosage: NOT REPORTED, ONCE, INSERTED IN THE BLADDER
     Route: 050
     Dates: start: 20140320, end: 20140320
  2. LIDOCAINE HYDROCHLORIDE. [Suspect]
     Active Substance: LIDOCAINE HYDROCHLORIDE
     Indication: BLADDER PAIN
     Dosage: NOT REPORTED, ONCE, INSERTED IN THE BLADDER
     Route: 050
     Dates: start: 20140320, end: 20140320

REACTIONS (7)
  - Drug administration error [Not Recovered/Not Resolved]
  - Product contamination physical [Not Recovered/Not Resolved]
  - Bladder pain [Not Recovered/Not Resolved]
  - Cystitis [Not Recovered/Not Resolved]
  - Cystitis [Not Recovered/Not Resolved]
  - Burning sensation [Not Recovered/Not Resolved]
  - Pain [Not Recovered/Not Resolved]

NARRATIVE: CASE EVENT DATE: 20140320
